FAERS Safety Report 7878986-2 (Version None)
Quarter: 2011Q4

REPORT INFORMATION
  Report Type: 
  Country: None (occurrence: None)
  Receive Date: 20111101
  Receipt Date: 20111019
  Transmission Date: 20120403
  Serious: Yes (Hospitalization)
  Sender: FDA-Public Use
  Company Number: PHHO2010US17331

PATIENT
  Sex: Female
  Weight: 106.3 kg

DRUGS (7)
  1. DESOGESTREL AND ETHINYL ESTRADIOL [Suspect]
     Indication: MENORRHAGIA
     Dosage: UNK
     Dates: start: 20080702
  2. TRIB [Suspect]
     Dosage: UNK
     Dates: start: 20030101
  3. GILENYA [Suspect]
     Dosage: DOSE BLINDED
     Route: 048
     Dates: start: 20090826, end: 20091209
  4. GILENYA [Suspect]
     Dosage: 0.5MG
     Route: 048
     Dates: start: 20091210, end: 20101110
  5. SEASONIQUE [Suspect]
     Indication: MENORRHAGIA
  6. HORMONES [Suspect]
  7. SEASONIQUE [Suspect]
     Indication: CONTRACEPTION
     Dosage: UNK
     Dates: start: 20080224

REACTIONS (9)
  - CONCOMITANT DISEASE PROGRESSION [None]
  - MALIGNANT TUMOUR EXCISION [None]
  - MULTIPLE SCLEROSIS RELAPSE [None]
  - HYSTERECTOMY [None]
  - DYSMENORRHOEA [None]
  - GAIT DISTURBANCE [None]
  - ENDOMETRIAL CANCER [None]
  - ANAEMIA [None]
  - EXPLORATIVE LAPAROTOMY [None]
